FAERS Safety Report 11233653 (Version 1)
Quarter: 2015Q3

REPORT INFORMATION
  Report Type: Spontaneous
  Country: MX (occurrence: MX)
  Receive Date: 20150702
  Receipt Date: 20150702
  Transmission Date: 20151125
  Serious: Yes (Death)
  Sender: FDA-Public Use
  Company Number: MX-ROCHE-1602174

PATIENT
  Age: 78 Year
  Sex: Female
  Weight: 85 kg

DRUGS (2)
  1. XELODA [Suspect]
     Active Substance: CAPECITABINE
     Indication: BREAST CANCER METASTATIC
     Dosage: 3 CYCLES ADMINISTERED / 21 DAYS DURATION OF CYCLE / 7 DAYS OF REST?LAST DOSE PRIOR TO SAE ON 01/JUN/
     Route: 065
     Dates: start: 20150406
  2. HERCEPTIN [Suspect]
     Active Substance: TRASTUZUMAB
     Indication: BREAST CANCER METASTATIC
     Dosage: 3 CYCLES ADMINISTERED?LAST DOSE PRIOR TO SAE ON 01/JUN/2015
     Route: 065
     Dates: start: 20150406, end: 20150601

REACTIONS (1)
  - Diabetic ketoacidosis [Fatal]
